FAERS Safety Report 10308296 (Version 1)
Quarter: 2014Q3

REPORT INFORMATION
  Report Type: Spontaneous
  Country: IT (occurrence: None)
  Receive Date: 20140714
  Receipt Date: 20140714
  Transmission Date: 20150326
  Serious: Yes (Other)
  Sender: FDA-Public Use
  Company Number: 2014AP003583

PATIENT
  Age: 73 Year
  Sex: Male

DRUGS (3)
  1. CARDIOASPIRIN (ACETYLSALICYLIC ACID) [Concomitant]
     Active Substance: ASPIRIN
  2. ATORVASTATIN [Suspect]
     Active Substance: ATORVASTATIN
     Indication: HYPERCHOLESTEROLAEMIA
     Route: 048
     Dates: start: 20140527, end: 20140602
  3. HIZENTRA (IMMUNOGLOBULIN G HUMAN) [Concomitant]

REACTIONS (3)
  - Dermatitis allergic [None]
  - Dermatitis bullous [None]
  - Pruritus [None]

NARRATIVE: CASE EVENT DATE: 20140602
